FAERS Safety Report 7262653-2 (Version None)
Quarter: 2011Q1

REPORT INFORMATION
  Report Type: 
  Country: None (occurrence: None)
  Receive Date: 20110130
  Receipt Date: 20101119
  Transmission Date: 20110831
  Serious: No
  Sender: FDA-Public Use
  Company Number: US-ABBOTT-10P-163-0676058-00

PATIENT
  Sex: Male
  Weight: 80.812 kg

DRUGS (5)
  1. HUMIRA [Suspect]
     Dosage: SYRINGES
  2. HUMIRA [Suspect]
     Indication: RHEUMATOID ARTHRITIS
  3. VICODIN [Concomitant]
     Indication: FIBROMYALGIA
  4. NAPROSYN [Concomitant]
     Indication: RHEUMATOID ARTHRITIS
  5. AMBIEN [Concomitant]
     Indication: SLEEP DISORDER THERAPY

REACTIONS (1)
  - PRODUCT COLOUR ISSUE [None]
